FAERS Safety Report 9823201 (Version 1)
Quarter: 2014Q1

REPORT INFORMATION
  Report Type: Report from Study
  Country: NL (occurrence: NL)
  Receive Date: 20140116
  Receipt Date: 20140116
  Transmission Date: 20141002
  Serious: Yes (Death)
  Sender: FDA-Public Use
  Company Number: PHHY2014NL004427

PATIENT
  Sex: Male

DRUGS (4)
  1. SANDOSTATIN LAR [Suspect]
     Indication: NEUROENDOCRINE TUMOUR
     Dosage: 30 MG /2 ML, ONE PER 2 WEEKS
     Route: 030
  2. SANDOSTATIN LAR [Suspect]
     Dosage: 30 MG /2 ML,ONE PER 2 WEEKS
     Route: 030
     Dates: start: 20130805
  3. SANDOSTATIN LAR [Suspect]
     Dosage: 30 MG /2 ML,ONE PER 2 WEEKS
     Route: 030
     Dates: start: 20131224
  4. SANDOSTATIN LAR [Suspect]
     Dosage: 30 MG /2 ML,ONE PER 2 WEEKS
     Route: 030
     Dates: start: 20140106

REACTIONS (1)
  - Death [Fatal]
